FAERS Safety Report 25637660 (Version 1)
Quarter: 2025Q3

REPORT INFORMATION
  Report Type: Spontaneous
  Country: EU (occurrence: EU)
  Receive Date: 20250804
  Receipt Date: 20250804
  Transmission Date: 20251020
  Serious: Yes (Other)
  Sender: CELLTRION
  Company Number: EU-AMGEN-GRCSP2025086703

PATIENT

DRUGS (8)
  1. ADALIMUMAB [Suspect]
     Active Substance: ADALIMUMAB
     Indication: Ankylosing spondylitis
     Dosage: 300 MILLIGRAM, QMO
     Route: 065
  2. ADALIMUMAB [Suspect]
     Active Substance: ADALIMUMAB
  3. INFLIXIMAB [Suspect]
     Active Substance: INFLIXIMAB
     Indication: Product used for unknown indication
     Route: 058
  4. SECUKINUMAB [Suspect]
     Active Substance: SECUKINUMAB
     Indication: Ankylosing spondylitis
     Dosage: 300 MILLIGRAM, QMO
     Route: 065
  5. ETANERCEPT [Suspect]
     Active Substance: ETANERCEPT
     Indication: Ankylosing spondylitis
     Route: 065
  6. ETANERCEPT [Suspect]
     Active Substance: ETANERCEPT
     Route: 065
  7. UPADACITINIB [Concomitant]
     Active Substance: UPADACITINIB
     Route: 065
  8. UPADACITINIB [Concomitant]
     Active Substance: UPADACITINIB

REACTIONS (3)
  - Ankylosing spondylitis [Unknown]
  - Crohn^s disease [Unknown]
  - Therapy non-responder [Unknown]
